FAERS Safety Report 16075831 (Version 1)
Quarter: 2019Q1

REPORT INFORMATION
  Report Type: Spontaneous
  Country: US (occurrence: US)
  Receive Date: 20190315
  Receipt Date: 20190315
  Transmission Date: 20190418
  Serious: No
  Sender: FDA-Public Use
  Company Number: US-ASTRAZENECA-2019SE27769

PATIENT
  Sex: Female

DRUGS (1)
  1. BYDUREON [Suspect]
     Active Substance: EXENATIDE
     Dosage: 2 MG
     Route: 065

REACTIONS (6)
  - Visual impairment [Unknown]
  - Wrong technique in device usage process [Unknown]
  - Memory impairment [Unknown]
  - Circumstance or information capable of leading to medication error [Unknown]
  - Incorrect dose administered [Unknown]
  - Product quality issue [Unknown]
